FAERS Safety Report 8461393 (Version 3)
Quarter: 2013Q4

REPORT INFORMATION
  Report Type: Spontaneous
  Country: US (occurrence: US)
  Receive Date: 20120315
  Receipt Date: 20131220
  Transmission Date: 20140711
  Serious: Yes (Hospitalization, Other)
  Sender: FDA-Public Use
  Company Number: US-BAYER-2012-023799

PATIENT
  Age: 19 Year
  Sex: Female
  Weight: 84.35 kg

DRUGS (1)
  1. YAZ [Suspect]
     Dosage: UNK
     Dates: start: 200609, end: 201007

REACTIONS (4)
  - Cholecystitis acute [None]
  - Gallbladder disorder [None]
  - Gallbladder disorder [None]
  - Gastric disorder [None]
